FAERS Safety Report 21354084 (Version 1)
Quarter: 2022Q3

REPORT INFORMATION
  Report Type: Report from Study
  Country: DE (occurrence: DE)
  Receive Date: 20220920
  Receipt Date: 20220920
  Transmission Date: 20221027
  Serious: Yes (Other)
  Sender: FDA-Public Use
  Company Number: DE-NOVARTISPH-NVSC2022DE185064

PATIENT
  Sex: Female
  Weight: 62 kg

DRUGS (1)
  1. MAYZENT [Suspect]
     Active Substance: SIPONIMOD
     Indication: Secondary progressive multiple sclerosis
     Dosage: 2 MG, QD
     Route: 048
     Dates: start: 20210421

REACTIONS (3)
  - Hypertension [Unknown]
  - Secondary progressive multiple sclerosis [Unknown]
  - Paresis [Unknown]

NARRATIVE: CASE EVENT DATE: 20220207
